FAERS Safety Report 15560533 (Version 1)
Quarter: 2018Q4

REPORT INFORMATION
  Report Type: Spontaneous
  Country: KR (occurrence: KR)
  Receive Date: 20181029
  Receipt Date: 20181029
  Transmission Date: 20190205
  Serious: Yes (Hospitalization, Other)
  Sender: FDA-Public Use
  Company Number: KR-MYLANLABS-2018M1078744

PATIENT
  Age: 61 Year
  Sex: Male

DRUGS (13)
  1. INSULIN [Concomitant]
     Active Substance: INSULIN NOS
     Indication: PRODUCT USED FOR UNKNOWN INDICATION
     Route: 065
  2. EPINEPHRINE. [Concomitant]
     Active Substance: EPINEPHRINE
     Indication: PRODUCT USED FOR UNKNOWN INDICATION
     Dosage: A PART OF BUPIVACAINE-BASED MIXTURE OF DRUGS, ADMINISTERED AS A SINGLE BOLUS USING A 20-GAUGE NEEDLE
     Route: 014
  3. CEFTEZOLE SODIUM [Concomitant]
     Active Substance: CEFTEZOLE SODIUM
     Indication: ANTIBIOTIC THERAPY
     Dosage: ALONG WITH 100ML OF NORMAL SALINE
     Route: 065
  4. REMIFENTANIL [Concomitant]
     Active Substance: REMIFENTANIL
     Indication: MAINTENANCE OF ANAESTHESIA
     Route: 065
  5. TACROLIMUS. [Concomitant]
     Active Substance: TACROLIMUS
     Indication: IMMUNOSUPPRESSANT DRUG THERAPY
     Route: 065
  6. BUPIVACAINE. [Suspect]
     Active Substance: BUPIVACAINE
     Indication: POSTOPERATIVE ANALGESIA
     Dosage: 20ML (200MG) OF BUPIVACAINE INJECTION WAS GIVEN IN EACH KNEE (ALONG WITH OTHER CONCOMITANT DRUGS)...
     Route: 014
  7. KETOCIN                            /00321701/ [Concomitant]
     Indication: POSTOPERATIVE ANALGESIA
     Dosage: A PART OF BUPIVACAINE-BASED MIXTURE OF DRUGS, ADMINISTERED AS A SINGLE BOLUS USING A 20-GAUGE NEEDLE
     Route: 014
  8. MORPHINE [Concomitant]
     Active Substance: MORPHINE
     Indication: POSTOPERATIVE ANALGESIA
     Dosage: A PART OF BUPIVACAINE-BASED MIXTURE OF DRUGS, ADMINISTERED AS A SINGLE BOLUS USING A 20-GAUGE NEEDLE
     Route: 014
  9. CISATRACURIUM. [Concomitant]
     Active Substance: CISATRACURIUM
     Indication: INDUCTION OF ANAESTHESIA
     Dosage: LATER, IT WAS GIVEN AS INFUSION
     Route: 065
  10. NORMAL SALINE [Concomitant]
     Active Substance: SODIUM CHLORIDE
     Indication: PRODUCT USED FOR UNKNOWN INDICATION
     Route: 065
  11. PROPOFOL. [Concomitant]
     Active Substance: PROPOFOL
     Indication: GENERAL ANAESTHESIA
     Route: 065
  12. CISATRACURIUM. [Concomitant]
     Active Substance: CISATRACURIUM
     Route: 050
  13. DESFLURANE. [Concomitant]
     Active Substance: DESFLURANE
     Indication: ANAESTHESIA
     Route: 065

REACTIONS (2)
  - Drug-induced liver injury [Recovered/Resolved]
  - Wrong technique in product usage process [Recovered/Resolved]
